FAERS Safety Report 8759897 (Version 1)
Quarter: 2012Q4

REPORT INFORMATION
  Report Type: 
  Country: US (occurrence: US)
  Receive Date: 20120829
  Receipt Date: 20120829
  Transmission Date: 20130627
  Serious: Yes (Hospitalization)
  Sender: FDA-Public Use
  Company Number: US-TEVA-355630USA

PATIENT
  Age: 56 Year
  Sex: Male

DRUGS (10)
  1. CLOZAPINE [Suspect]
     Dosage: 100 mg in AM, 3X100mg at bedtime
     Route: 048
     Dates: start: 1999
  2. ZETIA [Concomitant]
     Dosage: 10 Milligram Daily;
  3. ZOCOR [Concomitant]
     Dosage: 20 Milligram Daily;
  4. KLOR-CON [Concomitant]
     Dosage: 10 Milliequivalents Daily;
  5. MVI [Concomitant]
  6. LASIX [Concomitant]
     Dosage: 40 Milligram Daily;
  7. OMEPRAZOLE [Concomitant]
     Dosage: 20 Milligram Daily;
  8. GLIPIZIDE [Concomitant]
     Dosage: 10 Milligram Daily;
  9. COZAAR [Concomitant]
     Dosage: 50 Milligram Daily;
  10. BENTYL [Concomitant]
     Dosage: Q 8 PM

REACTIONS (2)
  - Colitis [Not Recovered/Not Resolved]
  - Blood count abnormal [Unknown]
